FAERS Safety Report 9817910 (Version 1)
Quarter: 2013Q4

REPORT INFORMATION
  Report Type: Spontaneous
  Country: US (occurrence: None)
  Receive Date: 20131223
  Receipt Date: 20131223
  Transmission Date: 20140711
  Serious: No
  Sender: FDA-Public Use
  Company Number: 218890

PATIENT
  Sex: Female

DRUGS (4)
  1. PICATO [Suspect]
     Indication: ACTINIC KERATOSIS
     Dosage: (FOR 3 DAYS) TO ARMS
  2. VITAMIN B (VITAMIN B) [Concomitant]
  3. VITAMINS [Concomitant]
  4. FISH OIL (FISH OIL) [Concomitant]

REACTIONS (1)
  - Eye pain [None]
